FAERS Safety Report 7097219-0 (Version None)
Quarter: 2010Q4

REPORT INFORMATION
  Report Type: 
  Country: None (occurrence: None)
  Receive Date: 20101111
  Receipt Date: 20100311
  Transmission Date: 20110411
  Serious: No
  Sender: FDA-Public Use
  Company Number: US-KINGPHARMUSA00001-K201000300

PATIENT
  Sex: Female
  Weight: 58.05 kg

DRUGS (1)
  1. BICILLIN C-R 900/300 [Suspect]
     Dosage: 2400000 U, SINGLE
     Dates: start: 20100311, end: 20100311

REACTIONS (3)
  - EXPIRED DRUG ADMINISTERED [None]
  - NO ADVERSE EVENT [None]
  - WRONG DRUG ADMINISTERED [None]
